FAERS Safety Report 6749249-3 (Version None)
Quarter: 2010Q2

REPORT INFORMATION
  Report Type: 
  Country: None (occurrence: None)
  Receive Date: 20100601
  Receipt Date: 20100520
  Transmission Date: 20101027
  Serious: Yes (Death, Other)
  Sender: FDA-Public Use
  Company Number: US-SANOFI-AVENTIS-2010SA022782

PATIENT
  Age: 87 Year
  Sex: Male
  Weight: 64 kg

DRUGS (9)
  1. LOVENOX [Suspect]
     Indication: ATRIAL FIBRILLATION
     Route: 058
     Dates: start: 20091222, end: 20091224
  2. COUMADIN [Suspect]
     Indication: ATRIAL FIBRILLATION
     Route: 065
     Dates: start: 20091222, end: 20091223
  3. HEPARIN [Concomitant]
     Route: 065
     Dates: start: 20091220, end: 20091221
  4. ASPIRIN [Concomitant]
     Route: 065
     Dates: start: 20091219, end: 20091223
  5. METOPROLOL TARTRATE [Concomitant]
     Route: 065
     Dates: start: 20091219, end: 20091223
  6. ZOCOR [Concomitant]
     Route: 065
     Dates: start: 20091219, end: 20091223
  7. ISORDIL [Concomitant]
     Route: 065
  8. LISINOPRIL [Concomitant]
     Route: 065
  9. NEXIUM /UNK/ [Concomitant]
     Route: 065

REACTIONS (3)
  - CARDIAC ARREST [None]
  - HAEMATOMA [None]
  - OFF LABEL USE [None]
